FAERS Safety Report 21860754 (Version 1)
Quarter: 2023Q1

REPORT INFORMATION
  Report Type: Spontaneous
  Country: US (occurrence: None)
  Receive Date: 20230113
  Receipt Date: 20230113
  Transmission Date: 20230418
  Serious: Yes (Death, Hospitalization)
  Sender: FDA-Public Use
  Company Number: None

PATIENT
  Sex: Female
  Weight: 77.5 kg

DRUGS (1)
  1. MAVYRET [Suspect]
     Active Substance: GLECAPREVIR\PIBRENTASVIR
     Indication: Hepatitis C
     Dosage: FREQUENCY : DAILY;?
     Route: 048
     Dates: start: 20190227, end: 20190305

REACTIONS (18)
  - Transplant dysfunction [None]
  - Transplant rejection [None]
  - Lung transplant [None]
  - Pulmonary function test decreased [None]
  - Plasmapheresis [None]
  - Lung opacity [None]
  - Graft complication [None]
  - Pulmonary oedema [None]
  - Dialysis [None]
  - Acute kidney injury [None]
  - Ammonia increased [None]
  - Cardiac arrest [None]
  - Ventricular fibrillation [None]
  - Depressed level of consciousness [None]
  - Pseudomonas infection [None]
  - Bronchopulmonary aspergillosis [None]
  - Enterococcal infection [None]
  - Multiple organ dysfunction syndrome [None]

NARRATIVE: CASE EVENT DATE: 20190228
